FAERS Safety Report 21156204 (Version 1)
Quarter: 2022Q3

REPORT INFORMATION
  Report Type: Spontaneous
  Country: US (occurrence: None)
  Receive Date: 20220731
  Receipt Date: 20220731
  Transmission Date: 20221026
  Serious: Yes (Hospitalization)
  Sender: FDA-Public Use
  Company Number: None

PATIENT
  Age: 44 Year
  Sex: Female
  Weight: 92.7 kg

DRUGS (1)
  1. MAGNESIUM CITRATE [Suspect]
     Active Substance: MAGNESIUM CITRATE
     Indication: Constipation
     Dosage: OTHER QUANTITY : 10 OUNCE(S);?FREQUENCY : 3 TIMES A DAY;?
     Route: 048

REACTIONS (5)
  - Abdominal pain upper [None]
  - Vomiting [None]
  - Haematemesis [None]
  - Anal haemorrhage [None]
  - Hepatitis [None]

NARRATIVE: CASE EVENT DATE: 20220721
